FAERS Safety Report 21392137 (Version 1)
Quarter: 2022Q3

REPORT INFORMATION
  Report Type: Spontaneous
  Country: US (occurrence: US)
  Receive Date: 20220929
  Receipt Date: 20220929
  Transmission Date: 20221026
  Serious: No
  Sender: FDA-Public Use
  Company Number: US-PFIZER INC-202201188127

PATIENT
  Sex: Male

DRUGS (2)
  1. ALTACE [Suspect]
     Active Substance: RAMIPRIL
     Dosage: 5 MG
  2. ALTACE [Suspect]
     Active Substance: RAMIPRIL
     Dosage: 10 MG

REACTIONS (1)
  - Blood potassium increased [Unknown]
